FAERS Safety Report 7533184-7 (Version None)
Quarter: 2011Q2

REPORT INFORMATION
  Report Type: 
  Country: None (occurrence: None)
  Receive Date: 20110608
  Receipt Date: 20030926
  Transmission Date: 20111010
  Serious: Yes (Death)
  Sender: FDA-Public Use
  Company Number: PHHO2003CA11918

PATIENT
  Sex: Male

DRUGS (2)
  1. NAPROXEN [Concomitant]
  2. CLOZAPINE [Suspect]
     Indication: SCHIZOPHRENIA
     Route: 048
     Dates: start: 20030605

REACTIONS (2)
  - CONVULSION [None]
  - COMPLETED SUICIDE [None]
